FAERS Safety Report 24336172 (Version 1)
Quarter: 2024Q3

REPORT INFORMATION
  Report Type: Report from Study
  Country: ID (occurrence: ID)
  Receive Date: 20240919
  Receipt Date: 20240919
  Transmission Date: 20241017
  Serious: No
  Sender: ROCHE
  Company Number: ID-ROCHE-3427400

PATIENT
  Age: 31 Year
  Sex: Male

DRUGS (8)
  1. OSELTAMIVIR [Suspect]
     Active Substance: OSELTAMIVIR
     Indication: COVID-19
     Route: 065
  2. LANSOPRAZOLE [Concomitant]
     Active Substance: LANSOPRAZOLE
  3. ZINC [Concomitant]
     Active Substance: ZINC
  4. AZITROMISIN [Concomitant]
  5. VITAMIN C [Concomitant]
     Active Substance: ASCORBIC ACID
  6. LORATADINE [Concomitant]
     Active Substance: LORATADINE
  7. POVIDONE-IODINE [Concomitant]
     Active Substance: POVIDONE-IODINE
  8. DOMPERIDONE [Concomitant]
     Active Substance: DOMPERIDONE

REACTIONS (2)
  - Off label use [Unknown]
  - Nausea [Unknown]
